FAERS Safety Report 5386305-9 (Version None)
Quarter: 2007Q3

REPORT INFORMATION
  Report Type: 
  Country: None (occurrence: None)
  Receive Date: 20070710
  Receipt Date: 20070625
  Transmission Date: 20080115
  Serious: Yes (Other)
  Sender: FDA-Public Use
  Company Number: US020418

PATIENT
  Age: 43 Year
  Sex: Male

DRUGS (1)
  1. ACTIQ [Suspect]
     Dosage: 600 UG BUCCAL
     Route: 002
     Dates: start: 20050928

REACTIONS (1)
  - SUICIDE ATTEMPT [None]
